FAERS Safety Report 6900386-X (Version None)
Quarter: 2010Q3

REPORT INFORMATION
  Report Type: 
  Country: None (occurrence: None)
  Receive Date: 20100803
  Receipt Date: 20100728
  Transmission Date: 20110219
  Serious: Yes (Life-Threatening, Hospitalization, Other)
  Sender: FDA-Public Use
  Company Number: PHHY2010US42371

PATIENT
  Sex: Female

DRUGS (9)
  1. RECLAST [Suspect]
     Indication: OSTEOPOROSIS
     Dosage: 5 MG, ONCE A YEAR
     Route: 042
     Dates: start: 20100622
  2. SANDOSTATIN [Suspect]
     Indication: PITUITARY TUMOUR
     Dosage: UNK
     Dates: start: 20100601
  3. SANDOSTATIN LAR [Suspect]
     Indication: PITUITARY TUMOUR
  4. LASIX [Concomitant]
  5. POTASSIUM [Concomitant]
  6. CALCIUM W/VITAMIN D NOS [Concomitant]
  7. DIGOXIN [Concomitant]
  8. DILTIAZEM [Concomitant]
  9. DIURETICS [Concomitant]

REACTIONS (15)
  - BLOOD PRESSURE DECREASED [None]
  - BLOOD URINE PRESENT [None]
  - BONE DISORDER [None]
  - BONE PAIN [None]
  - CARDIAC FAILURE CONGESTIVE [None]
  - DYSSTASIA [None]
  - FEELING ABNORMAL [None]
  - JOINT SWELLING [None]
  - MALAISE [None]
  - MYALGIA [None]
  - OEDEMA PERIPHERAL [None]
  - PAIN [None]
  - PYREXIA [None]
  - RENAL DISORDER [None]
  - TREMOR [None]
